FAERS Safety Report 15616868 (Version 14)
Quarter: 2020Q2

REPORT INFORMATION
  Report Type: Report from Study
  Country: BR (occurrence: BR)
  Receive Date: 20181114
  Receipt Date: 20200515
  Transmission Date: 20200713
  Serious: Yes (Death, Hospitalization, Other)
  Sender: FDA-Public Use
  Company Number: BR-ROCHE-2142627

PATIENT
  Age: 73 Year
  Sex: Female
  Weight: 60 kg

DRUGS (23)
  1. ESBRIET [Suspect]
     Active Substance: PIRFENIDONE
     Indication: IDIOPATHIC PULMONARY FIBROSIS
     Route: 065
     Dates: start: 201805
  2. ESBRIET [Suspect]
     Active Substance: PIRFENIDONE
     Indication: IDIOPATHIC PULMONARY FIBROSIS
     Route: 065
     Dates: start: 20180507
  3. LEXOTAN [Suspect]
     Active Substance: BROMAZEPAM
     Indication: SLEEP DISORDER THERAPY
     Route: 065
     Dates: start: 2018
  4. ESBRIET [Suspect]
     Active Substance: PIRFENIDONE
     Dosage: 3 IN THE BREAKFAST, 3 AT LUNCH AND 3 AT DINNER?3 TABLETS EACH MEAL
     Route: 048
     Dates: start: 201805
  5. PROCORALAN [Concomitant]
     Active Substance: IVABRADINE
     Route: 065
  6. DOMPERIDONE [Concomitant]
     Active Substance: DOMPERIDONE
     Indication: GASTROOESOPHAGEAL REFLUX DISEASE
  7. HYDROCHLOROTHIAZIDE. [Concomitant]
     Active Substance: HYDROCHLOROTHIAZIDE
     Indication: BLOOD PRESSURE ABNORMAL
     Route: 065
  8. RANITIDINE. [Concomitant]
     Active Substance: RANITIDINE
     Indication: GASTRITIS
     Route: 065
  9. LIPASE [Concomitant]
     Active Substance: LIPASE
     Route: 065
  10. ESBRIET [Suspect]
     Active Substance: PIRFENIDONE
     Dosage: 1 IN THE BREAKFAST, 1 AT LUNCH AND 1 AT DINNER
     Route: 065
  11. OMEPRAZOLE. [Concomitant]
     Active Substance: OMEPRAZOLE
     Indication: GASTRIC DISORDER
  12. ATORVASTATIN [Concomitant]
     Active Substance: ATORVASTATIN
     Indication: BLOOD CHOLESTEROL ABNORMAL
     Route: 065
  13. RANITIDINE. [Concomitant]
     Active Substance: RANITIDINE
     Route: 065
  14. CODEIN [Concomitant]
     Active Substance: CODEINE
     Indication: COUGH
     Dosage: 2 TABLET
     Route: 065
  15. MEMODIN [Concomitant]
     Route: 065
  16. ATENOLOL. [Concomitant]
     Active Substance: ATENOLOL
     Indication: BLOOD PRESSURE ABNORMAL
     Route: 065
  17. PANTOPRAZOLE [Concomitant]
     Active Substance: PANTOPRAZOLE
     Indication: GASTRITIS
     Route: 065
  18. GLIFAGE [Concomitant]
     Active Substance: METFORMIN HYDROCHLORIDE
     Indication: DIABETES MELLITUS
     Dosage: 3 TABLET
     Route: 065
  19. PURAN [Concomitant]
     Active Substance: LEVOTHYROXINE SODIUM
     Indication: HYPOTHYROIDISM
     Dosage: IN FASTING
     Route: 065
  20. ESBRIET [Suspect]
     Active Substance: PIRFENIDONE
     Dosage: 2 IN THE BREAKFAST, 2 AT LUNCH AND 2 AT DINNER
     Route: 065
     Dates: start: 20180507
  21. RIVOTRIL [Suspect]
     Active Substance: CLONAZEPAM
     Indication: SLEEP DISORDER THERAPY
     Dosage: 5 DROPS DAILY
     Route: 065
  22. AMLODIPINE BESYLATE. [Concomitant]
     Active Substance: AMLODIPINE BESYLATE
     Route: 065
  23. ASPIRIN [ACETYLSALICYLIC ACID] [Concomitant]
     Active Substance: ASPIRIN
     Indication: HYPERTENSION
     Dosage: 1 TABLET
     Route: 065

REACTIONS (40)
  - Lung disorder [Recovered/Resolved]
  - Skin exfoliation [Not Recovered/Not Resolved]
  - Gastrooesophageal reflux disease [Recovered/Resolved]
  - Anhedonia [Not Recovered/Not Resolved]
  - Seizure [Unknown]
  - Intentional product use issue [Unknown]
  - Feeding disorder [Recovered/Resolved]
  - Dizziness [Recovered/Resolved]
  - Feeling hot [Unknown]
  - Dry skin [Not Recovered/Not Resolved]
  - Weight increased [Unknown]
  - Dependence on oxygen therapy [Not Recovered/Not Resolved]
  - Off label use [Unknown]
  - Heart rate increased [Not Recovered/Not Resolved]
  - Drug ineffective [Unknown]
  - Social avoidant behaviour [Not Recovered/Not Resolved]
  - Dysuria [Not Recovered/Not Resolved]
  - Pulmonary hypertension [Recovered/Resolved]
  - Cough [Not Recovered/Not Resolved]
  - Nausea [Recovering/Resolving]
  - Secretion discharge [Not Recovered/Not Resolved]
  - Oxygen saturation decreased [Not Recovered/Not Resolved]
  - Myalgia [Not Recovered/Not Resolved]
  - Depression [Recovered/Resolved]
  - Glycosylated haemoglobin abnormal [Recovered/Resolved]
  - Ill-defined disorder [Unknown]
  - Dyspnoea [Unknown]
  - Insomnia [Recovering/Resolving]
  - Dyspepsia [Recovered/Resolved]
  - Eating disorder [Recovered/Resolved]
  - Eructation [Recovered/Resolved]
  - Malaise [Unknown]
  - Death [Fatal]
  - Fatigue [Recovering/Resolving]
  - Respiratory disorder [Recovered/Resolved]
  - Vomiting [Not Recovered/Not Resolved]
  - Decreased appetite [Recovered/Resolved]
  - Weight decreased [Not Recovered/Not Resolved]
  - Decreased appetite [Not Recovered/Not Resolved]
  - Diarrhoea [Unknown]

NARRATIVE: CASE EVENT DATE: 201909
